FAERS Safety Report 12456488 (Version 1)
Quarter: 2016Q2

REPORT INFORMATION
  Report Type: Spontaneous
  Country: US (occurrence: US)
  Receive Date: 20160610
  Receipt Date: 20160610
  Transmission Date: 20160815
  Serious: Yes (Other)
  Sender: FDA-Public Use
  Company Number: PHEH2015US027719

PATIENT
  Sex: Female

DRUGS (1)
  1. SANDOSTATIN LAR DEPOT [Suspect]
     Active Substance: OCTREOTIDE ACETATE
     Indication: CARCINOID TUMOUR
     Dosage: UNK UNK, QMO
     Route: 065

REACTIONS (15)
  - Injection site mass [Unknown]
  - Pancreastatin increased [Unknown]
  - Neoplasm [Unknown]
  - Fatigue [Unknown]
  - Alopecia [Unknown]
  - Drug level below therapeutic [Unknown]
  - Thyroid disorder [Unknown]
  - Serum serotonin increased [Unknown]
  - Malignant neoplasm progression [Unknown]
  - Drug ineffective [Unknown]
  - Nausea [Unknown]
  - Diarrhoea [Unknown]
  - Bowel movement irregularity [Unknown]
  - Injection site pain [Unknown]
  - Dizziness [Unknown]
